FAERS Safety Report 4511683-X (Version None)
Quarter: 2004Q4

REPORT INFORMATION
  Report Type: 
  Country: None (occurrence: None)
  Receive Date: 20041123
  Receipt Date: 20041123
  Transmission Date: 20050328
  Serious: Yes (Hospitalization)
  Sender: FDA-Public Use
  Company Number: None

PATIENT
  Age: 52 Year
  Sex: Female

DRUGS (10)
  1. TACROLIMUS [Suspect]
     Indication: IMMUNOSUPPRESSANT DRUG THERAPY
     Dosage: ORAL
     Route: 048
  2. TACROLIMUS [Suspect]
     Indication: RENAL TRANSPLANT
     Dosage: ORAL
     Route: 048
  3. MYCOPHENOLATE MOFETICL [Concomitant]
  4. PREDNISONE [Concomitant]
  5. METOPROL XL [Concomitant]
  6. FAMOTIDINE [Concomitant]
  7. GLIPIZIDE [Concomitant]
  8. CHROMAGEN [Concomitant]
  9. SODIUM BICARBONATE [Concomitant]
  10. SLIDING SCALE INSULIN [Concomitant]

REACTIONS (5)
  - COMPLICATIONS OF TRANSPLANT SURGERY [None]
  - DEHYDRATION [None]
  - DIARRHOEA [None]
  - NAUSEA [None]
  - VOMITING [None]
